FAERS Safety Report 9812910 (Version 7)
Quarter: 2014Q2

REPORT INFORMATION
  Report Type: Spontaneous
  Country: US (occurrence: US)
  Receive Date: 20140113
  Receipt Date: 20140514
  Transmission Date: 20141212
  Serious: Yes (Other)
  Sender: FDA-Public Use
  Company Number: US-PFIZER INC-2014004968

PATIENT
  Age: 38 Year
  Sex: Male
  Weight: 104.3 kg

DRUGS (13)
  1. SUTENT [Suspect]
     Dosage: 50 MG, DAILY ON HIS 6TH OR 7TH DAYS AFTER EXTENDED HOLD
  2. SUTENT [Suspect]
     Dosage: 50 MG, UNK
     Dates: start: 20140107
  3. SUTENT [Suspect]
     Dosage: UNK
     Dates: start: 20140416
  4. PRILOSEC [Concomitant]
     Dosage: UNK
  5. DECADRON [Concomitant]
     Dosage: UNK
  6. AXIRON [Concomitant]
     Dosage: UNK
  7. ZOFRAN [Concomitant]
     Indication: NAUSEA
     Dosage: UNK
  8. DULCOLAX [Concomitant]
     Indication: CONSTIPATION
     Dosage: UNK
  9. HYDROCODONE [Concomitant]
     Indication: HEADACHE
     Dosage: UNK
  10. HYDROCODONE [Concomitant]
     Indication: PAIN
  11. LISINOPRIL [Concomitant]
     Dosage: 40 MG, 1X/DAY IN AM
  12. CLONIDINE [Concomitant]
     Indication: BLOOD PRESSURE
     Dosage: 1 MG, AS NEEDED
  13. SUTENT [Suspect]
     Indication: NEOPLASM MALIGNANT
     Dosage: 50 MG, DAILY (DAY 7 OF FIRST CYCLE)

REACTIONS (20)
  - Hypertension [Not Recovered/Not Resolved]
  - Nausea [Not Recovered/Not Resolved]
  - Headache [Recovering/Resolving]
  - Fatigue [Not Recovered/Not Resolved]
  - Rash macular [Not Recovered/Not Resolved]
  - Skin discolouration [Unknown]
  - White blood cell count decreased [Unknown]
  - Weight decreased [Not Recovered/Not Resolved]
  - Poor quality sleep [Unknown]
  - Decreased appetite [Not Recovered/Not Resolved]
  - Dysgeusia [Unknown]
  - Asthenia [Not Recovered/Not Resolved]
  - Back pain [Unknown]
  - Disease progression [Unknown]
  - Neoplasm malignant [Unknown]
  - Dyspepsia [Unknown]
  - Constipation [Unknown]
  - Balance disorder [Unknown]
  - Fall [Unknown]
  - Neck pain [Unknown]
